FAERS Safety Report 20431753 (Version 2)
Quarter: 2022Q2

REPORT INFORMATION
  Report Type: Spontaneous
  Country: US (occurrence: US)
  Receive Date: 20220204
  Receipt Date: 20220401
  Transmission Date: 20220721
  Serious: Yes (Other)
  Sender: FDA-Public Use
  Company Number: US-PFIZER INC-202200149610

PATIENT
  Age: 69 Year
  Sex: Female

DRUGS (1)
  1. IBRANCE [Suspect]
     Active Substance: PALBOCICLIB
     Dosage: 100 MG, CYCLIC (TAKE1 TABLET DAILY ON DAYS 1 THROUGH 21 EVERY 28 DAY)
     Route: 048
     Dates: start: 202101

REACTIONS (3)
  - Pneumonia [Unknown]
  - Sinusitis [Unknown]
  - Neoplasm progression [Unknown]
